FAERS Safety Report 16013002 (Version 6)
Quarter: 2020Q4

REPORT INFORMATION
  Report Type: Spontaneous
  Country: US (occurrence: US)
  Receive Date: 20190227
  Receipt Date: 20201221
  Transmission Date: 20210113
  Serious: No
  Sender: FDA-Public Use
  Company Number: US-VERTEX PHARMACEUTICALS-2019-001572

PATIENT
  Sex: Male
  Weight: 21 kg

DRUGS (1)
  1. ORKAMBI [Suspect]
     Active Substance: IVACAFTOR\LUMACAFTOR
     Indication: CYSTIC FIBROSIS
     Dosage: 150/188 MG GRANULES, 1 PACKET, BID
     Route: 048
     Dates: start: 201810

REACTIONS (11)
  - Aggression [Not Recovered/Not Resolved]
  - Bladder spasm [Unknown]
  - Enuresis [Not Recovered/Not Resolved]
  - Nasal polyps [Recovering/Resolving]
  - Irritability [Recovered/Resolved]
  - Liver function test increased [Unknown]
  - Defiant behaviour [Unknown]
  - Headache [Unknown]
  - Pseudomonas infection [Unknown]
  - Drug ineffective [Unknown]
  - Blood glucose increased [Unknown]

NARRATIVE: CASE EVENT DATE: 2018
